FAERS Safety Report 5737010-8 (Version None)
Quarter: 2008Q2

REPORT INFORMATION
  Report Type: 
  Country: None (occurrence: None)
  Receive Date: 20080513
  Receipt Date: 20080513
  Transmission Date: 20081010
  Serious: Yes (Other)
  Sender: FDA-Public Use
  Company Number: None

PATIENT
  Age: 6 Year
  Sex: Female
  Weight: 23.587 kg

DRUGS (1)
  1. VYVANSE [Suspect]
     Dosage: 30 MG ONCE DAILY PO
     Route: 048
     Dates: start: 20070810, end: 20070810

REACTIONS (8)
  - AGITATION [None]
  - BODY TEMPERATURE INCREASED [None]
  - DERMATILLOMANIA [None]
  - DYSTONIA [None]
  - HALLUCINATION [None]
  - HEART RATE INCREASED [None]
  - LOGORRHOEA [None]
  - MUSCLE TWITCHING [None]
